FAERS Safety Report 18436167 (Version 1)
Quarter: 2020Q4

REPORT INFORMATION
  Report Type: Spontaneous
  Country: US (occurrence: US)
  Receive Date: 20201028
  Receipt Date: 20201028
  Transmission Date: 20210114
  Serious: Yes (Other)
  Sender: FDA-Public Use
  Company Number: US-BAYER-2020-228276

PATIENT
  Age: 78 Year
  Sex: Female

DRUGS (23)
  1. CALCIUM [Concomitant]
     Active Substance: CALCIUM
  2. ALLEGRA [Concomitant]
     Active Substance: FEXOFENADINE HYDROCHLORIDE
  3. AUGMENTINE [AMOXICILLIN;CLAVULANIC ACID] [Concomitant]
     Active Substance: AMOXICILLIN\CLAVULANIC ACID
  4. RITUXAN [Concomitant]
     Active Substance: RITUXIMAB
  5. NORCO [Concomitant]
     Active Substance: ACETAMINOPHEN\HYDROCODONE BITARTRATE
  6. LISINOPRIL. [Concomitant]
     Active Substance: LISINOPRIL
  7. BETAMETHASONE VALERATE. [Concomitant]
     Active Substance: BETAMETHASONE VALERATE
  8. PEPCID [Concomitant]
     Active Substance: FAMOTIDINE
  9. MUCINEX [Concomitant]
     Active Substance: GUAIFENESIN
  10. DICLOFENAC [Concomitant]
     Active Substance: DICLOFENAC
  11. PRENATAL VITAMINS [MINERALS NOS;VITAMINS NOS] [Concomitant]
     Active Substance: MINERALS\VITAMINS
  12. VALIUM [Concomitant]
     Active Substance: DIAZEPAM
  13. CARVEDILOL. [Concomitant]
     Active Substance: CARVEDILOL
  14. FUROSEMIDE. [Concomitant]
     Active Substance: FUROSEMIDE
  15. FAMOTIDINE. [Concomitant]
     Active Substance: FAMOTIDINE
  16. SULFAMETHOXAZOLE [Concomitant]
     Active Substance: SULFAMETHOXAZOLE
  17. CIPRO [Suspect]
     Active Substance: CIPROFLOXACIN HYDROCHLORIDE
  18. OXYBUTYNIN. [Concomitant]
     Active Substance: OXYBUTYNIN CHLORIDE
  19. RITUXAN HYCELA [Concomitant]
     Active Substance: HYALURONIDASE (HUMAN RECOMBINANT)\RITUXIMAB
  20. ASPIRIN (CARDIO) [Concomitant]
     Active Substance: ASPIRIN
  21. XARELTO [Concomitant]
     Active Substance: RIVAROXABAN
  22. CARAFATE [Concomitant]
     Active Substance: SUCRALFATE
  23. COLACE [Concomitant]
     Active Substance: DOCUSATE SODIUM

REACTIONS (1)
  - Hallucination [Unknown]
